FAERS Safety Report 6300073-5 (Version None)
Quarter: 2009Q3

REPORT INFORMATION
  Report Type: 
  Country: None (occurrence: None)
  Receive Date: 20090803
  Receipt Date: 20090720
  Transmission Date: 20100115
  Serious: Yes (Hospitalization, Disabling, Other)
  Sender: FDA-Public Use
  Company Number: ADR8982009

PATIENT
  Age: 82 Year
  Sex: Female

DRUGS (8)
  1. ALENDRONIC ACID (MFR: UNKNOWN) [Suspect]
     Indication: OSTEOPOROSIS POSTMENOPAUSAL
     Dosage: 70 MG/WEEK ORAL
     Route: 048
  2. ASPIRIN [Concomitant]
  3. CODEINE [Concomitant]
  4. FRUSEMIDE [Concomitant]
  5. LANSOPRAZOLE [Concomitant]
  6. LISINOPRIL [Concomitant]
  7. LEVOTHYROXINE [Concomitant]
  8. LEVOTHYROXINE SODIUM [Concomitant]

REACTIONS (3)
  - FEMUR FRACTURE [None]
  - INJURY [None]
  - PAIN IN EXTREMITY [None]
